FAERS Safety Report 17109595 (Version 1)
Quarter: 2019Q4

REPORT INFORMATION
  Report Type: Spontaneous
  Country: IT (occurrence: IT)
  Receive Date: 20191204
  Receipt Date: 20191204
  Transmission Date: 20200122
  Serious: Yes (Hospitalization)
  Sender: FDA-Public Use
  Company Number: IT-ASTRAZENECA-2019SF69412

PATIENT
  Age: 84 Year
  Sex: Female

DRUGS (9)
  1. BISOPROLOL FUMARATE. [Concomitant]
     Active Substance: BISOPROLOL FUMARATE
     Route: 048
  2. BARNIDIPINE HYDROCHLORIDE [Concomitant]
     Active Substance: BARNIDIPINE HYDROCHLORIDE
     Dosage: 10.0MG UNKNOWN
     Route: 048
  3. OMEPRAZOLE SODIUM [Suspect]
     Active Substance: OMEPRAZOLE SODIUM
     Indication: GASTROOESOPHAGEAL REFLUX DISEASE
     Route: 042
  4. ADENURIC [Concomitant]
     Active Substance: FEBUXOSTAT
  5. CRESTOR [Suspect]
     Active Substance: ROSUVASTATIN CALCIUM
     Route: 048
  6. LASIX [Concomitant]
     Active Substance: FUROSEMIDE
  7. LANOXIN [Concomitant]
     Active Substance: DIGOXIN
  8. COUMADIN [Suspect]
     Active Substance: WARFARIN SODIUM
     Indication: ATRIAL FIBRILLATION
     Dosage: 1.0DF UNKNOWN
     Route: 048
  9. ENAPREN [Concomitant]
     Active Substance: ENALAPRIL MALEATE

REACTIONS (4)
  - Anaemia [Recovering/Resolving]
  - Drug interaction [Recovering/Resolving]
  - Haematuria [Recovering/Resolving]
  - International normalised ratio increased [Recovering/Resolving]

NARRATIVE: CASE EVENT DATE: 20191110
